FAERS Safety Report 8421512-X (Version None)
Quarter: 2012Q2

REPORT INFORMATION
  Report Type: 
  Country: None (occurrence: None)
  Receive Date: 20120608
  Receipt Date: 20120606
  Transmission Date: 20120825
  Serious: No
  Sender: FDA-Public Use
  Company Number: FR-JNJFOC-20120517940

PATIENT
  Sex: Female

DRUGS (2)
  1. DURAGESIC-100 [Suspect]
     Indication: PAIN
     Route: 062
     Dates: start: 20120518
  2. DURAGESIC-100 [Suspect]
     Dosage: 1 PATCH A DAY DURING 3 WEEKS
     Route: 062

REACTIONS (3)
  - OFF LABEL USE [None]
  - DRUG INTOLERANCE [None]
  - DRUG PRESCRIBING ERROR [None]
